FAERS Safety Report 6303854-7 (Version None)
Quarter: 2009Q3

REPORT INFORMATION
  Report Type: 
  Country: None (occurrence: None)
  Receive Date: 20090807
  Receipt Date: 20090807
  Transmission Date: 20100115
  Serious: Yes (Hospitalization)
  Sender: FDA-Public Use
  Company Number: None

PATIENT
  Age: 86 Year
  Sex: Male

DRUGS (1)
  1. WARFARIN [Suspect]
     Indication: ATRIAL FIBRILLATION
     Dosage: 5 MG, PO
     Route: 048
     Dates: start: 20060214, end: 20090403

REACTIONS (6)
  - ARTHRALGIA [None]
  - EPISTAXIS [None]
  - HAEMORRHAGE [None]
  - INTERNATIONAL NORMALISED RATIO INCREASED [None]
  - OSTEOARTHRITIS [None]
  - TREATMENT NONCOMPLIANCE [None]
